FAERS Safety Report 23335184 (Version 1)
Quarter: 2023Q4

REPORT INFORMATION
  Report Type: Spontaneous
  Country: NL (occurrence: NL)
  Receive Date: 20231225
  Receipt Date: 20231225
  Transmission Date: 20240110
  Serious: Yes (Other)
  Sender: FDA-Public Use
  Company Number: NL-LRB-00933217

PATIENT
  Age: 74 Year
  Sex: Male
  Weight: 76.6 kg

DRUGS (2)
  1. PAROXETINE [Suspect]
     Active Substance: PAROXETINE
     Indication: Depression
     Dosage: 20 MILLIGRAM, ONCE A DAY
     Route: 065
     Dates: start: 20180814
  2. CYPROTERONE [Suspect]
     Active Substance: CYPROTERONE
     Indication: Hypersexuality
     Dosage: 50 MILLIGRAM
     Route: 065
     Dates: start: 20231030, end: 20231121

REACTIONS (4)
  - Hypokinesia [Not Recovered/Not Resolved]
  - Chills [Not Recovered/Not Resolved]
  - Musculoskeletal stiffness [Not Recovered/Not Resolved]
  - Serotonin syndrome [Not Recovered/Not Resolved]
